FAERS Safety Report 11691128 (Version 2)
Quarter: 2015Q4

REPORT INFORMATION
  Report Type: Spontaneous
  Country: US (occurrence: US)
  Receive Date: 20151102
  Receipt Date: 20151103
  Transmission Date: 20160304
  Serious: Yes (Hospitalization)
  Sender: FDA-Public Use
  Company Number: US-LPDUSPRD-20150860

PATIENT
  Age: 31 Year
  Sex: Male

DRUGS (2)
  1. DEXAMETHASONE. [Concomitant]
     Active Substance: DEXAMETHASONE
     Dosage: DOSE NOT PROVIDED
     Route: 065
  2. LEVETIRACETAM INJECTION (0517-3605-01) [Suspect]
     Active Substance: LEVETIRACETAM
     Dosage: DOSE UNKNOWN
     Route: 065

REACTIONS (9)
  - Dyspnoea [Unknown]
  - Rash pruritic [Unknown]
  - Eosinophilia [Recovered/Resolved]
  - Rash maculo-papular [Unknown]
  - Rash erythematous [Unknown]
  - Hepatitis [Unknown]
  - Cough [Unknown]
  - Pyrexia [Unknown]
  - Pneumonitis [Unknown]
